FAERS Safety Report 4749689-8 (Version None)
Quarter: 2005Q3

REPORT INFORMATION
  Report Type: 
  Country: None (occurrence: None)
  Receive Date: 20050822
  Receipt Date: 20050811
  Transmission Date: 20060218
  Serious: Yes (Other)
  Sender: FDA-Public Use
  Company Number: IT-ROCHE-413835

PATIENT
  Age: 63 Year
  Sex: Female

DRUGS (3)
  1. TICLID [Suspect]
     Route: 048
     Dates: start: 20050615, end: 20050716
  2. ASPIRIN [Concomitant]
     Route: 048
     Dates: start: 20050615
  3. BISOPROLOL FUMARATE [Concomitant]
     Indication: HYPERTENSION
     Dosage: REPORTED AS PLUSCOR.
     Route: 048
     Dates: start: 20000615

REACTIONS (2)
  - EYELID OEDEMA [None]
  - URTICARIA [None]
